FAERS Safety Report 8622726 (Version 2)
Quarter: 2013Q3

REPORT INFORMATION
  Report Type: Spontaneous
  Country: US (occurrence: US)
  Receive Date: 20120619
  Receipt Date: 20130731
  Transmission Date: 20140515
  Serious: No
  Sender: FDA-Public Use
  Company Number: US-B.I. PHARMACEUTICALS,INC./RIDGEFIELD-2012-BP-00143BP

PATIENT
  Age: 77 Year
  Sex: Male

DRUGS (14)
  1. PRADAXA [Suspect]
     Indication: ATRIAL FIBRILLATION
     Dosage: 300 MG
     Route: 048
     Dates: start: 2010
  2. PRADAXA [Suspect]
     Indication: ANTICOAGULANT THERAPY
  3. HYDRALAZINE [Concomitant]
     Indication: HYPERTENSION
     Dosage: 225 MG
     Route: 048
  4. HYDRALAZINE [Concomitant]
     Indication: HYPERTENSION
     Dosage: 150 MG
     Route: 048
  5. HYDRALAZINE [Concomitant]
     Dosage: 450 MG
     Route: 048
  6. PACERONE [Concomitant]
     Indication: CARDIAC DISORDER
     Dosage: 200 MG
     Route: 048
  7. PACERONE [Concomitant]
     Indication: ATRIAL FIBRILLATION
  8. METOPROLOL [Concomitant]
     Indication: ATRIAL FIBRILLATION
     Dosage: 25 MG
     Route: 048
  9. METOPROLOL [Concomitant]
     Indication: ARRHYTHMIA
     Route: 048
  10. METOPROLOL [Concomitant]
     Indication: PULSE ABNORMAL
  11. METOPROLOL [Concomitant]
     Indication: HYPERTENSION
  12. LORTAB [Concomitant]
     Indication: BACK PAIN
     Route: 048
  13. ALPRAZOLAM [Concomitant]
     Indication: ANXIETY
     Dosage: 1.5 MG
     Route: 048
  14. OMEPRAZOLE [Concomitant]
     Indication: ULCER HAEMORRHAGE
     Dosage: 40 MG
     Route: 048

REACTIONS (13)
  - Eye haemorrhage [Not Recovered/Not Resolved]
  - Gingival bleeding [Unknown]
  - Haemorrhoidal haemorrhage [Unknown]
  - Headache [Not Recovered/Not Resolved]
  - Chest discomfort [Recovered/Resolved]
  - Haemorrhoidal haemorrhage [Not Recovered/Not Resolved]
  - Nausea [Not Recovered/Not Resolved]
  - Tinnitus [Not Recovered/Not Resolved]
  - Swelling face [Not Recovered/Not Resolved]
  - Ear discomfort [Not Recovered/Not Resolved]
  - Cataract [Not Recovered/Not Resolved]
  - Prostatomegaly [Not Recovered/Not Resolved]
  - Fall [Recovered/Resolved]
